FAERS Safety Report 11881084 (Version 1)
Quarter: 2015Q4

REPORT INFORMATION
  Report Type: Report from Study
  Country: JP (occurrence: JP)
  Receive Date: 20151230
  Receipt Date: 20151230
  Transmission Date: 20160305
  Serious: Yes (Death, Hospitalization)
  Sender: FDA-Public Use
  Company Number: JP-CELGENE-087-21660-13060570

PATIENT
  Age: 59 Year
  Sex: Male
  Weight: 60 kg

DRUGS (11)
  1. ABRAXANE [Suspect]
     Active Substance: PACLITAXEL
     Route: 041
     Dates: start: 2013
  2. SINGULAIR [Concomitant]
     Active Substance: MONTELUKAST SODIUM
     Indication: URTICARIA
     Route: 048
     Dates: start: 20130510
  3. HIRUDOID [Concomitant]
     Active Substance: GLYCOSAMINOGLYCANS
     Indication: PRODUCT USED FOR UNKNOWN INDICATION
     Route: 065
     Dates: start: 20130510
  4. ABRAXANE [Suspect]
     Active Substance: PACLITAXEL
     Indication: GASTRIC CANCER
     Route: 041
     Dates: start: 20130522, end: 20130529
  5. GATIFLO [Concomitant]
     Active Substance: GATIFLOXACIN
     Indication: DACRYOSTENOSIS ACQUIRED
     Route: 065
     Dates: start: 201206
  6. XYZAL [Concomitant]
     Active Substance: LEVOCETIRIZINE DIHYDROCHLORIDE
     Route: 048
     Dates: start: 20130516
  7. XYZAL [Concomitant]
     Active Substance: LEVOCETIRIZINE DIHYDROCHLORIDE
     Indication: URTICARIA
     Route: 048
     Dates: start: 20130510
  8. TARIVID [Concomitant]
     Active Substance: OFLOXACIN
     Indication: DACRYOSTENOSIS ACQUIRED
     Route: 065
     Dates: start: 20130602
  9. FLUMETHOLON [Concomitant]
     Active Substance: FLUOROMETHOLONE
     Indication: DACRYOSTENOSIS ACQUIRED
     Route: 065
     Dates: start: 201206
  10. MAGLAX [Concomitant]
     Active Substance: MAGNESIUM OXIDE
     Indication: CONSTIPATION
     Route: 048
     Dates: start: 20130510
  11. ANTEBATE [Concomitant]
     Active Substance: BETAMETHASONE DIPROPIONATE
     Indication: URTICARIA
     Route: 065
     Dates: start: 20130510

REACTIONS (2)
  - Febrile neutropenia [Fatal]
  - Septic shock [Fatal]

NARRATIVE: CASE EVENT DATE: 20130601
